FAERS Safety Report 8459490 (Version 4)
Quarter: 2013Q1

REPORT INFORMATION
  Report Type: Spontaneous
  Country: US (occurrence: US)
  Receive Date: 20120314
  Receipt Date: 20130315
  Transmission Date: 20140127
  Serious: Yes (Hospitalization, Other)
  Sender: FDA-Public Use
  Company Number: US-ASTRAZENECA-2011SE72583

PATIENT
  Age: 68 Year
  Sex: Female

DRUGS (2)
  1. TOPROL XL [Suspect]
     Route: 048
  2. TOPROL XL [Suspect]
     Route: 048

REACTIONS (8)
  - Adrenal neoplasm [Unknown]
  - Adverse event [Unknown]
  - Cardiac disorder [Unknown]
  - Heart rate increased [Unknown]
  - Somnolence [Unknown]
  - Fatigue [Unknown]
  - Palpitations [Unknown]
  - Drug dose omission [Unknown]
